FAERS Safety Report 4763102-6 (Version None)
Quarter: 2005Q3

REPORT INFORMATION
  Report Type: 
  Country: None (occurrence: None)
  Receive Date: 20050826
  Receipt Date: 20050329
  Transmission Date: 20060218
  Serious: Yes (Hospitalization, Other)
  Sender: FDA-Public Use
  Company Number: USA-2004-0012376

PATIENT
  Age: 47 Year
  Sex: Female
  Weight: 152.4 kg

DRUGS (32)
  1. OXYCONTIN [Suspect]
     Indication: PAIN
     Dosage: 40 MG, BID , ORAL
     Route: 048
  2. METHADONE HCL [Suspect]
     Dosage: 10 MG , BID, ORAL
     Route: 048
  3. AVAPRO [Concomitant]
  4. SYNTHROID [Concomitant]
  5. CLONIDINE [Concomitant]
  6. PREMARIN [Concomitant]
  7. LASIX [Concomitant]
  8. POTASSIUM [Concomitant]
  9. ALPHABETIC [Concomitant]
  10. SURFAK [Concomitant]
  11. TUMS [Concomitant]
  12. VIOXX [Concomitant]
  13. PRINIVIL [Concomitant]
  14. PROTONIX [Concomitant]
  15. ALBUTEROL [Concomitant]
  16. ATROVENT [Concomitant]
  17. KLOTRIX [Concomitant]
  18. ATIVAN [Concomitant]
  19. LORCET-HD [Concomitant]
  20. CELEBREX [Concomitant]
  21. AMBIEN [Concomitant]
  22. MACROBID [Concomitant]
  23. PEPCID [Concomitant]
  24. NORVASC [Concomitant]
  25. ZITHROMAX [Concomitant]
  26. XANAX [Concomitant]
  27. METHYLDOPA [Concomitant]
  28. XENICAL [Concomitant]
  29. FENTANYL [Concomitant]
  30. EFFEXOR [Concomitant]
  31. KLOR-CON [Concomitant]
  32. COLACE [Concomitant]

REACTIONS (43)
  - ABDOMINAL DISTENSION [None]
  - ABDOMINAL PAIN [None]
  - ANXIETY [None]
  - ARTHRALGIA [None]
  - ASTHENIA [None]
  - BLOOD PRESSURE INCREASED [None]
  - BLOOD THYROID STIMULATING HORMONE INCREASED [None]
  - CHEST PAIN [None]
  - CONSTIPATION [None]
  - COUGH [None]
  - CRYING [None]
  - DEPRESSED MOOD [None]
  - DEPRESSION [None]
  - DRUG DEPENDENCE [None]
  - DRUG TOLERANCE [None]
  - DRUG WITHDRAWAL SYNDROME [None]
  - DYSPEPSIA [None]
  - DYSPHONIA [None]
  - DYSPNOEA [None]
  - FATIGUE [None]
  - FEELING ABNORMAL [None]
  - FEELING JITTERY [None]
  - FLUID RETENTION [None]
  - GAIT DISTURBANCE [None]
  - GASTROOESOPHAGEAL REFLUX DISEASE [None]
  - HEADACHE [None]
  - HOT FLUSH [None]
  - HYPOREFLEXIA [None]
  - INADEQUATE ANALGESIA [None]
  - INSOMNIA [None]
  - MEMORY IMPAIRMENT [None]
  - MOOD ALTERED [None]
  - NAUSEA [None]
  - NERVOUSNESS [None]
  - OEDEMA PERIPHERAL [None]
  - PAIN [None]
  - PANIC ATTACK [None]
  - SINUSITIS [None]
  - SOMNOLENCE [None]
  - TEMPERATURE INTOLERANCE [None]
  - THIRST [None]
  - TINNITUS [None]
  - WEIGHT FLUCTUATION [None]
